FAERS Safety Report 17670863 (Version 1)
Quarter: 2020Q2

REPORT INFORMATION
  Report Type: Spontaneous
  Country: US (occurrence: US)
  Receive Date: 20200415
  Receipt Date: 20200415
  Transmission Date: 20200713
  Serious: Yes (Hospitalization)
  Sender: FDA-Public Use
  Company Number: None

PATIENT
  Age: 47 Year
  Sex: Female

DRUGS (1)
  1. IBRANCE [Suspect]
     Active Substance: PALBOCICLIB
     Route: 048
     Dates: start: 20200131

REACTIONS (5)
  - Urinary tract infection [None]
  - Nephrolithiasis [None]
  - Sepsis [None]
  - Kidney infection [None]
  - White blood cell count decreased [None]

NARRATIVE: CASE EVENT DATE: 20200310
